FAERS Safety Report 18516163 (Version 2)
Quarter: 2021Q1

REPORT INFORMATION
  Report Type: Spontaneous
  Country: DE (occurrence: DE)
  Receive Date: 20201118
  Receipt Date: 20210211
  Transmission Date: 20210419
  Serious: Yes (Other)
  Sender: FDA-Public Use
  Company Number: NVSC2020DE299097

PATIENT
  Sex: Female

DRUGS (2)
  1. COSENTYX [Suspect]
     Active Substance: SECUKINUMAB
     Indication: PSORIATIC ARTHROPATHY
     Dosage: (STOPPED 4 MONTHS AGO)
     Route: 065
  2. COSENTYX [Suspect]
     Active Substance: SECUKINUMAB
     Indication: ANKYLOSING SPONDYLITIS

REACTIONS (11)
  - Psoriatic arthropathy [Unknown]
  - Gait inability [Unknown]
  - Product dose omission issue [Unknown]
  - Visual impairment [Unknown]
  - Condition aggravated [Unknown]
  - Hypoacusis [Unknown]
  - Rheumatic disorder [Unknown]
  - Aphasia [Unknown]
  - Ankylosing spondylitis [Unknown]
  - General physical health deterioration [Unknown]
  - Pain [Unknown]
